FAERS Safety Report 9037888 (Version 2)
Quarter: 2013Q4

REPORT INFORMATION
  Report Type: Spontaneous
  Country: US (occurrence: US)
  Receive Date: 20130129
  Receipt Date: 20131031
  Transmission Date: 20140711
  Serious: Yes (Other)
  Sender: FDA-Public Use
  Company Number: US-BAYER-2013-011473

PATIENT
  Age: 19 Year
  Sex: Female

DRUGS (4)
  1. YAZ [Suspect]
     Dosage: UNK
     Dates: start: 200912
  2. OMEPRAZOLE [Concomitant]
     Dosage: 20 MG, UNK
  3. FLUTICASONE [Concomitant]
     Dosage: 50 MCGS
  4. ACIPHEX [Concomitant]

REACTIONS (5)
  - Cholecystectomy [None]
  - Biliary dyskinesia [None]
  - Cholecystitis chronic [None]
  - Injury [None]
  - Pain [None]
